FAERS Safety Report 13507846 (Version 1)
Quarter: 2017Q2

REPORT INFORMATION
  Report Type: Spontaneous
  Country: US (occurrence: US)
  Receive Date: 20170503
  Receipt Date: 20170503
  Transmission Date: 20170830
  Serious: No
  Sender: FDA-Public Use
  Company Number: US-PFIZER INC-2017186605

PATIENT
  Sex: Female

DRUGS (1)
  1. LYRICA [Suspect]
     Active Substance: PREGABALIN
     Dosage: UNK

REACTIONS (7)
  - Autonomic nervous system imbalance [Unknown]
  - Presyncope [Unknown]
  - Musculoskeletal pain [Unknown]
  - Disease recurrence [Unknown]
  - Sciatica [Unknown]
  - Hyperhidrosis [Unknown]
  - Back pain [Unknown]
